FAERS Safety Report 14487644 (Version 3)
Quarter: 2018Q1

REPORT INFORMATION
  Report Type: Spontaneous
  Country: US (occurrence: US)
  Receive Date: 20180205
  Receipt Date: 20180313
  Transmission Date: 20180509
  Serious: Yes (Hospitalization, Other)
  Sender: FDA-Public Use
  Company Number: US-PFIZER INC-2018048218

PATIENT
  Age: 81 Year
  Sex: Female
  Weight: 49.9 kg

DRUGS (2)
  1. IBRANCE [Suspect]
     Active Substance: PALBOCICLIB
     Indication: BREAST CANCER METASTATIC
     Dosage: 100 MG, CYCLIC (DAILY FOR 21 DAYS, OFF FOR 7 DAYS)
     Route: 048
     Dates: start: 20171228
  2. IBRANCE [Suspect]
     Active Substance: PALBOCICLIB
     Dosage: 100 MG, CYCLIC (DAILY FOR 21 DAYS ON OFF FOR 7 DAYS)
     Route: 048
     Dates: start: 20171228

REACTIONS (9)
  - Dehydration [Unknown]
  - Dyspnoea [Recovered/Resolved]
  - Abdominal pain upper [Not Recovered/Not Resolved]
  - Neoplasm progression [Unknown]
  - Diverticulitis [Unknown]
  - Arthralgia [Unknown]
  - Eating disorder [Recovered/Resolved with Sequelae]
  - Cholecystitis infective [Unknown]
  - Pain in extremity [Unknown]

NARRATIVE: CASE EVENT DATE: 20180119
